FAERS Safety Report 4881456-7 (Version None)
Quarter: 2005Q4

REPORT INFORMATION
  Report Type: 
  Country: None (occurrence: None)
  Receive Date: 20051209
  Receipt Date: 20050621
  Transmission Date: 20060501
  Serious: Yes (Death)
  Sender: FDA-Public Use
  Company Number: USA-2005-0020639

PATIENT
  Age: 32 Year
  Sex: Female

DRUGS (2)
  1. OXYCODONE HCL [Suspect]
  2. PROMETHAZINE HYDROCHLORIDE TAB [Suspect]

REACTIONS (2)
  - MULTIPLE DRUG OVERDOSE [None]
  - POLYSUBSTANCE ABUSE [None]
